FAERS Safety Report 23626864 (Version 4)
Quarter: 2024Q2

REPORT INFORMATION
  Report Type: Spontaneous
  Country: CA (occurrence: CA)
  Receive Date: 20240313
  Receipt Date: 20240409
  Transmission Date: 20240716
  Serious: Yes (Other)
  Sender: FDA-Public Use
  Company Number: CA-BEH-2024169511

PATIENT
  Age: 64 Year
  Sex: Male
  Weight: 84 kg

DRUGS (2)
  1. PRIVIGEN [Suspect]
     Active Substance: HUMAN IMMUNOGLOBULIN G
     Indication: Chronic inflammatory demyelinating polyradiculoneuropathy
     Dosage: 40 GRAM
     Route: 042
     Dates: start: 20221219, end: 20221219
  2. PRIVIGEN [Suspect]
     Active Substance: HUMAN IMMUNOGLOBULIN G
     Dosage: 40 GRAM
     Route: 042
     Dates: start: 20221228, end: 20221228

REACTIONS (4)
  - Erythema multiforme [Recovering/Resolving]
  - Erythema [Recovering/Resolving]
  - Eczema [Recovering/Resolving]
  - Pruritus [Recovering/Resolving]

NARRATIVE: CASE EVENT DATE: 20221219
